FAERS Safety Report 10679726 (Version 2)
Quarter: 2015Q1

REPORT INFORMATION
  Report Type: Spontaneous
  Country: US (occurrence: US)
  Receive Date: 20141229
  Receipt Date: 20150325
  Transmission Date: 20150720
  Serious: No
  Sender: FDA-Public Use
  Company Number: US-GLAXOSMITHKLINE-US2014023261

PATIENT
  Age: 31 Year
  Sex: Female

DRUGS (1)
  1. ABREVA [Suspect]
     Active Substance: DOCOSANOL
     Indication: ORAL HERPES
     Dosage: UNK
     Route: 061
     Dates: start: 20141115, end: 20141116

REACTIONS (3)
  - Lip swelling [Recovering/Resolving]
  - Hypersensitivity [Unknown]
  - Furuncle [Unknown]

NARRATIVE: CASE EVENT DATE: 20141115
